FAERS Safety Report 13652488 (Version 1)
Quarter: 2017Q2

REPORT INFORMATION
  Report Type: Report from Study
  Country: US (occurrence: US)
  Receive Date: 20170614
  Receipt Date: 20170614
  Transmission Date: 20170830
  Serious: Yes (Hospitalization, Other)
  Sender: FDA-Public Use
  Company Number: US-ACTELION-A-NJ2017-148329

PATIENT
  Age: 56 Year
  Sex: Female
  Weight: 81.18 kg

DRUGS (2)
  1. ADCIRCA [Concomitant]
     Active Substance: TADALAFIL
  2. OPSUMIT [Suspect]
     Active Substance: MACITENTAN
     Indication: PULMONARY HYPERTENSION
     Dosage: 10 MG, QD
     Route: 048
     Dates: start: 20161109

REACTIONS (15)
  - Cough [Unknown]
  - Malaise [Unknown]
  - Dizziness [Unknown]
  - Anxiety [Unknown]
  - Feeling abnormal [Unknown]
  - Pneumonia [Unknown]
  - Syncope [Unknown]
  - Chest pain [Unknown]
  - Heart rate increased [Unknown]
  - Hepatic fibrosis [Unknown]
  - Bronchitis [Unknown]
  - Hepatitis [Unknown]
  - Loss of consciousness [Unknown]
  - Palpitations [Unknown]
  - Fatigue [Unknown]

NARRATIVE: CASE EVENT DATE: 20170126
